FAERS Safety Report 16064971 (Version 2)
Quarter: 2019Q1

REPORT INFORMATION
  Report Type: Spontaneous
  Country: MX (occurrence: MX)
  Receive Date: 20190313
  Receipt Date: 20190325
  Transmission Date: 20190418
  Serious: Yes (Hospitalization, Other)
  Sender: FDA-Public Use
  Company Number: PHHY2019MX053857

PATIENT
  Age: 39 Year
  Sex: Male

DRUGS (1)
  1. RYDAPT [Suspect]
     Active Substance: MIDOSTAURIN
     Indication: ACUTE MYELOID LEUKAEMIA
     Dosage: 50 MG, Q12H
     Route: 048
     Dates: start: 20190131, end: 20190213

REACTIONS (5)
  - Bone marrow failure [Unknown]
  - Rectal haemorrhage [Recovered/Resolved]
  - Thrombocytopenia [Unknown]
  - Mucosal inflammation [Unknown]
  - Infection [Unknown]

NARRATIVE: CASE EVENT DATE: 20190131
